FAERS Safety Report 4875130-0 (Version None)
Quarter: 2006Q1

REPORT INFORMATION
  Report Type: 
  Country: None (occurrence: None)
  Receive Date: 20060109
  Receipt Date: 20060102
  Transmission Date: 20060701
  Serious: Yes (Hospitalization)
  Sender: FDA-Public Use
  Company Number: FR-JNJFOC-20060100325

PATIENT
  Age: 27 Year
  Sex: Male
  Weight: 67 kg

DRUGS (4)
  1. REMICADE [Suspect]
     Indication: CROHN'S DISEASE
     Dosage: 3 INFUSIONS
     Route: 042
  2. METHOTREXATE [Suspect]
     Route: 030
     Dates: start: 20011201
  3. METHOTREXATE [Suspect]
     Indication: DRUG USE FOR UNKNOWN INDICATION
     Route: 030
     Dates: start: 20011201
  4. CORTANCYL [Suspect]
     Indication: DRUG USE FOR UNKNOWN INDICATION
     Route: 048

REACTIONS (13)
  - ABDOMINAL PAIN [None]
  - ANAEMIA [None]
  - ARTHRALGIA [None]
  - ASTHENIA [None]
  - CHILLS [None]
  - COUGH [None]
  - DIARRHOEA [None]
  - LEUKOCYTOSIS [None]
  - PYREXIA [None]
  - SARCOIDOSIS [None]
  - THROMBOCYTHAEMIA [None]
  - TUBERCULOSIS [None]
  - WEIGHT DECREASED [None]
